FAERS Safety Report 5893379-5 (Version None)
Quarter: 2008Q3

REPORT INFORMATION
  Report Type: 
  Country: None (occurrence: None)
  Receive Date: 20080923
  Receipt Date: 20080918
  Transmission Date: 20090109
  Serious: Yes (Other)
  Sender: FDA-Public Use
  Company Number: US-MERCK-0809USA03184

PATIENT
  Sex: Female

DRUGS (1)
  1. ISENTRESS [Suspect]
     Indication: HIV INFECTION
     Route: 048
     Dates: start: 20080101, end: 20080918

REACTIONS (3)
  - HEPATIC ENZYME ABNORMAL [None]
  - HEPATIC ENZYME INCREASED [None]
  - HEPATOTOXICITY [None]
